FAERS Safety Report 7277993-0 (Version None)
Quarter: 2011Q1

REPORT INFORMATION
  Report Type: 
  Country: None (occurrence: None)
  Receive Date: 20110207
  Receipt Date: 20110127
  Transmission Date: 20110831
  Serious: Yes (Death)
  Sender: FDA-Public Use
  Company Number: PHHY2011FI06317

PATIENT
  Sex: Male

DRUGS (11)
  1. LEVEMIR [Concomitant]
     Dosage: 100 U/ML
  2. BISOPROLOL [Concomitant]
     Dosage: 1 DF, QD
     Route: 048
  3. ZANIDIP [Concomitant]
     Dosage: 1 DF, QD
  4. LOSARTAN POTASSIUM AND HYDROCHLOROTHIAZIDE [Concomitant]
     Dosage: 1 DF, QD
     Route: 048
  5. SIMVASTATIN [Concomitant]
     Dosage: 1 DF, QD
     Route: 048
  6. DINIT [Concomitant]
     Dosage: 1-3 TIMES
  7. PANADOL [Concomitant]
     Dosage: 1 DF X 1-3
     Route: 048
  8. ORAMET [Suspect]
     Indication: DIABETES MELLITUS
     Dosage: 2+3 TABLETS A DAY
     Route: 048
  9. PRIMASPAN [Concomitant]
     Dosage: 1 DF, QD
     Route: 048
  10. MIRTAZAPINE [Concomitant]
     Dosage: 1 DF, QD
     Route: 048
  11. SEPRAM [Concomitant]
     Dosage: 1 DF, QD
     Route: 048

REACTIONS (4)
  - LACTIC ACIDOSIS [None]
  - CHEST PAIN [None]
  - DYSPNOEA [None]
  - CARDIAC ARREST [None]
